FAERS Safety Report 7968568-6 (Version None)
Quarter: 2011Q4

REPORT INFORMATION
  Report Type: 
  Country: None (occurrence: None)
  Receive Date: 20111209
  Receipt Date: 20110618
  Transmission Date: 20120403
  Serious: Yes (Other)
  Sender: FDA-Public Use
  Company Number: BR-MERCK-1110BRA00011

PATIENT
  Sex: Female

DRUGS (16)
  1. PREDNISONE [Concomitant]
     Route: 065
     Dates: start: 20010101, end: 20020101
  2. FOLIC ACID [Concomitant]
     Route: 065
  3. CALCIUM (UNSPECIFIED) [Suspect]
     Indication: OSTEOPENIA
     Route: 065
     Dates: start: 19980101
  4. CHLOROQUINE PHOSPHATE [Concomitant]
     Route: 065
     Dates: end: 19990101
  5. VITAMIN D (UNSPECIFIED) [Suspect]
     Indication: OSTEOPENIA
     Route: 065
     Dates: start: 19981001
  6. INFLIXIMAB [Concomitant]
     Route: 065
     Dates: start: 20021207
  7. DICLOFENAC SODIUM [Concomitant]
     Route: 065
  8. LEFLUNOMIDE [Concomitant]
     Route: 065
     Dates: start: 19990101
  9. SULFASALAZINE [Concomitant]
     Route: 065
     Dates: end: 19990101
  10. PREDNISONE [Concomitant]
     Route: 065
  11. FOSAMAX [Suspect]
     Indication: OSTEOPENIA
     Route: 065
     Dates: start: 19980101
  12. INDOCIN [Suspect]
     Route: 065
  13. PREDNISONE [Concomitant]
     Route: 065
     Dates: end: 20010101
  14. METHOTREXATE [Concomitant]
     Route: 065
     Dates: end: 19990101
  15. METHOTREXATE [Concomitant]
     Route: 065
     Dates: start: 20010101
  16. METHOTREXATE [Concomitant]
     Route: 065

REACTIONS (3)
  - OSTEOPOROSIS [None]
  - PROSTHESIS IMPLANTATION [None]
  - SYNOVITIS [None]
